FAERS Safety Report 8547898-3 (Version None)
Quarter: 2012Q3

REPORT INFORMATION
  Report Type: 
  Country: None (occurrence: None)
  Receive Date: 20120728
  Receipt Date: 20110406
  Transmission Date: 20120928
  Serious: Yes (Hospitalization)
  Sender: FDA-Public Use
  Company Number: US-BAYER-201036807NA

PATIENT
  Age: 29 Year
  Sex: Female
  Weight: 77 kg

DRUGS (12)
  1. YASMIN [Suspect]
     Indication: ORAL CONTRACEPTION
     Route: 048
     Dates: start: 20010101, end: 20060615
  2. CRION [Concomitant]
     Indication: PRODUCT USED FOR UNKNOWN INDICATION
     Route: 065
  3. DROSPIRENONE AND ETHINYL ESTRADIOL [Suspect]
     Indication: ORAL CONTRACEPTION
     Route: 048
     Dates: start: 20070101, end: 20090615
  4. SYNTHROID [Concomitant]
  5. BENTYL [Concomitant]
     Route: 065
  6. PANADEINE CO [Concomitant]
     Dosage: EVERY 4 HOURS PER NEED
     Route: 065
  7. TYLENOL W/ CODEINE NO. 3 [Concomitant]
     Dosage: EVERY 4 HOURS PER NEED
     Route: 065
  8. BIFIDOBACTERIUM BIFIDUM [Concomitant]
     Route: 065
  9. PROBIOTICS [Concomitant]
     Route: 065
  10. IBUPROFEN [Concomitant]
  11. CRION NOS [Concomitant]
     Route: 065
  12. PROBIOTICS [Concomitant]
     Route: 065

REACTIONS (16)
  - ABDOMINAL PAIN UPPER [None]
  - DIZZINESS [None]
  - BILIARY DYSKINESIA [None]
  - DEPRESSION [None]
  - FEAR OF DEATH [None]
  - ABDOMINAL TENDERNESS [None]
  - DYSPEPSIA [None]
  - EMOTIONAL DISTRESS [None]
  - NERVOUSNESS [None]
  - CHILLS [None]
  - CHOLECYSTITIS CHRONIC [None]
  - INJURY [None]
  - ABDOMINAL DISCOMFORT [None]
  - BACK PAIN [None]
  - DIARRHOEA [None]
  - NAUSEA [None]
